FAERS Safety Report 14789267 (Version 2)
Quarter: 2018Q3

REPORT INFORMATION
  Report Type: Spontaneous
  Country: DE (occurrence: DE)
  Receive Date: 20180423
  Receipt Date: 20180906
  Transmission Date: 20181010
  Serious: Yes (Hospitalization)
  Sender: FDA-Public Use
  Company Number: PHHY2018DE068901

PATIENT
  Sex: Female

DRUGS (3)
  1. METHOTREXATE. [Suspect]
     Active Substance: METHOTREXATE
     Dosage: 7.5 MG, UNK
     Route: 065
  2. METHOTREXATE. [Suspect]
     Active Substance: METHOTREXATE
     Indication: PRODUCT USED FOR UNKNOWN INDICATION
     Dosage: 27.5 MG, UNK
     Route: 065
  3. SIMPONI [Suspect]
     Active Substance: GOLIMUMAB
     Indication: RHEUMATOID ARTHRITIS
     Dosage: 50 MG, UNK
     Route: 058

REACTIONS (8)
  - Intervertebral disc protrusion [Recovered/Resolved]
  - Pneumonia haemophilus [Recovered/Resolved]
  - Pneumonia [Recovered/Resolved]
  - Osteoarthritis [Recovered/Resolved]
  - Spinal column stenosis [Recovered/Resolved]
  - Rotator cuff syndrome [Recovered/Resolved]
  - Pneumonia [Recovered/Resolved]
  - Spinal instability [Recovered/Resolved]

NARRATIVE: CASE EVENT DATE: 20170601
